FAERS Safety Report 17276059 (Version 1)
Quarter: 2020Q1

REPORT INFORMATION
  Report Type: Spontaneous
  Country: US (occurrence: US)
  Receive Date: 20200116
  Receipt Date: 20200116
  Transmission Date: 20200409
  Serious: Yes (Other)
  Sender: FDA-Public Use
  Company Number: US-FRESENIUS KABI-FK202000477

PATIENT
  Age: 50 Year
  Sex: Male

DRUGS (1)
  1. HEPARIN (MANUFACTURER UNKNOWN) [Suspect]
     Active Substance: HEPARIN SODIUM
     Indication: PULMONARY EMBOLISM
     Dosage: INFUSION
     Route: 065

REACTIONS (3)
  - Pulseless electrical activity [Recovered/Resolved]
  - Heparin-induced thrombocytopenia [Recovered/Resolved]
  - Hypotension [Recovered/Resolved]
